FAERS Safety Report 9391841 (Version 2)
Quarter: 2013Q4

REPORT INFORMATION
  Report Type: Spontaneous
  Country: US (occurrence: US)
  Receive Date: 20130709
  Receipt Date: 20131120
  Transmission Date: 20140711
  Serious: Yes (Life-Threatening, Hospitalization)
  Sender: FDA-Public Use
  Company Number: US-FRI-1000046551

PATIENT
  Sex: Female
  Weight: 57.1 kg

DRUGS (2)
  1. LINZESS [Suspect]
     Indication: CONSTIPATION
     Dosage: 145MCG
     Route: 048
     Dates: start: 20130509, end: 2013
  2. PROPRANOLOL [Concomitant]
     Indication: HYPERTENSION
     Dosage: 80MG

REACTIONS (2)
  - Diverticular perforation [Not Recovered/Not Resolved]
  - Diverticulitis [Not Recovered/Not Resolved]
